FAERS Safety Report 5288977-6 (Version None)
Quarter: 2007Q1

REPORT INFORMATION
  Report Type: 
  Country: None (occurrence: None)
  Receive Date: 20070117
  Receipt Date: 20060801
  Transmission Date: 20070707
  Serious: Yes (Hospitalization)
  Sender: FDA-Public Use
  Company Number: 457994

PATIENT
  Age: 50 Year
  Sex: Female

DRUGS (3)
  1. ROCEPHIN [Suspect]
     Indication: DRUG USE FOR UNKNOWN INDICATION
     Dates: start: 20060715
  2. PARCOPA (CARBIDOPA/LEVODOPA) 125 MG [Suspect]
     Indication: DRUG USE FOR UNKNOWN INDICATION
     Dosage: 3 PER DAY
     Dates: start: 20060718, end: 20060721
  3. VANCOMYCIN HYDROCHLORIDE [Concomitant]

REACTIONS (1)
  - AGRANULOCYTOSIS [None]
